FAERS Safety Report 9554438 (Version 2)
Quarter: 2013Q4

REPORT INFORMATION
  Report Type: Spontaneous
  Country: US (occurrence: US)
  Receive Date: 20130925
  Receipt Date: 20131001
  Transmission Date: 20140711
  Serious: Yes (Other)
  Sender: FDA-Public Use
  Company Number: CHPA2013US014722

PATIENT
  Sex: Male

DRUGS (5)
  1. VOLTAREN GEL [Suspect]
     Indication: ANKLE FRACTURE
     Dosage: 2 G, QID
     Route: 061
     Dates: start: 201212
  2. VOLTAREN GEL [Suspect]
     Indication: OFF LABEL USE
  3. MORPHINE [Concomitant]
     Indication: PAIN
     Dosage: UNK, UNK
     Route: 065
  4. NEURONTIN [Concomitant]
     Indication: PAIN
     Dosage: UNK UNK
     Route: 065
  5. PERCOCET [Concomitant]
     Indication: PAIN
     Dosage: UNK, UNK
     Route: 065

REACTIONS (2)
  - Ankle fracture [Not Recovered/Not Resolved]
  - Pain [Unknown]
